FAERS Safety Report 13359388 (Version 1)
Quarter: 2017Q1

REPORT INFORMATION
  Report Type: Report from Study
  Country: US (occurrence: US)
  Receive Date: 20170322
  Receipt Date: 20170322
  Transmission Date: 20170429
  Serious: Yes (Other)
  Sender: FDA-Public Use
  Company Number: US-UCBSA-2017010784

PATIENT

DRUGS (1)
  1. LEVETIRACETAM. [Suspect]
     Active Substance: LEVETIRACETAM
     Indication: SEIZURE
     Dosage: UNK

REACTIONS (15)
  - Eye pain [Unknown]
  - Drug ineffective [Unknown]
  - Weight increased [Unknown]
  - Dizziness [Unknown]
  - Amnesia [Unknown]
  - Generalised tonic-clonic seizure [Unknown]
  - Myoclonus [Unknown]
  - Somnolence [Unknown]
  - Aggression [Unknown]
  - Fatigue [Unknown]
  - Disturbance in attention [Unknown]
  - Headache [Unknown]
  - Seizure [Unknown]
  - Memory impairment [Unknown]
  - Vertigo [Unknown]
